FAERS Safety Report 18869493 (Version 1)
Quarter: 2021Q1

REPORT INFORMATION
  Report Type: Report from Study
  Country: FR (occurrence: FR)
  Receive Date: 20210210
  Receipt Date: 20210210
  Transmission Date: 20210420
  Serious: Yes (Other)
  Sender: FDA-Public Use
  Company Number: FR-ROCHE-2761379

PATIENT
  Age: 65 Year
  Sex: Male
  Weight: 65 kg

DRUGS (6)
  1. BCG?MEDAC [Suspect]
     Active Substance: BACILLUS CALMETTE-GUERIN ANTIGEN, UNSPECIFIED SUBSTRAIN
     Indication: BLADDER CANCER
     Dosage: DOSE : 1 INSTILLATION ?CYCLE 11?LAST ADMINISTERED DOSE OF BCG?MEDAC BY INSTILLATION WAS ON 28/APR/20
     Route: 043
     Dates: start: 20190228
  2. ASPIRINE [Concomitant]
     Active Substance: ASPIRIN
     Indication: EMBOLISM
     Route: 048
     Dates: start: 2004
  3. ATEZOLIZUMAB. [Suspect]
     Active Substance: ATEZOLIZUMAB
     Indication: BLADDER CANCER
     Dosage: CYCLE 18?LAST ADMINISTERED DOSE 1200 MG OF ATEZOLIZUMAB ON 20/FEB/2020
     Route: 041
     Dates: start: 20190228
  4. ZESTRIL [Concomitant]
     Active Substance: LISINOPRIL
     Indication: CARDIAC FAILURE
     Route: 048
     Dates: start: 2004
  5. SINTROM [Concomitant]
     Active Substance: ACENOCOUMAROL
     Indication: EMBOLISM
     Route: 048
     Dates: start: 2004
  6. INSPRA [Concomitant]
     Active Substance: EPLERENONE
     Indication: MYOCARDIAL ISCHAEMIA
     Route: 048
     Dates: start: 2004

REACTIONS (1)
  - Hepatocellular injury [Recovered/Resolved]

NARRATIVE: CASE EVENT DATE: 20200520
